FAERS Safety Report 6291280-9 (Version None)
Quarter: 2009Q3

REPORT INFORMATION
  Report Type: 
  Country: None (occurrence: None)
  Receive Date: 20090728
  Receipt Date: 20090728
  Transmission Date: 20100115
  Serious: Yes (Life-Threatening)
  Sender: FDA-Public Use
  Company Number: None

PATIENT
  Age: 18 Year
  Sex: Female
  Weight: 53.5244 kg

DRUGS (1)
  1. COMPAZINE [Suspect]
     Indication: VIRAL INFECTION
     Dosage: PO
     Route: 048

REACTIONS (3)
  - MUSCLE DISORDER [None]
  - PARALYSIS [None]
  - TONGUE DISORDER [None]
